FAERS Safety Report 4834968-6 (Version None)
Quarter: 2005Q4

REPORT INFORMATION
  Report Type: 
  Country: None (occurrence: None)
  Receive Date: 20051114
  Receipt Date: 20051103
  Transmission Date: 20060501
  Serious: Yes (Hospitalization)
  Sender: FDA-Public Use
  Company Number: 2005PV002504

PATIENT
  Age: 56 Year
  Sex: Female
  Weight: 102.0593 kg

DRUGS (9)
  1. BYETTA [Suspect]
     Indication: DIABETES MELLITUS NON-INSULIN-DEPENDENT
     Dosage: 5 MCG;BID;SC
     Route: 058
     Dates: start: 20050901, end: 20050901
  2. TUMS EXTRA-STRENGTH [Suspect]
     Dosage: 10 TABS;QD;PO
     Route: 048
  3. GLUCOPHAGE [Concomitant]
  4. LANTUS [Concomitant]
  5. HUMALOG [Concomitant]
  6. ZESTRIL [Concomitant]
  7. AVANDIA [Concomitant]
  8. VYTORIN [Concomitant]
  9. LASIX [Concomitant]

REACTIONS (13)
  - ATRIAL FIBRILLATION [None]
  - DEHYDRATION [None]
  - DILATATION ATRIAL [None]
  - DYSARTHRIA [None]
  - HAEMATEMESIS [None]
  - HAEMOGLOBIN DECREASED [None]
  - HYPERCALCAEMIA [None]
  - NAUSEA [None]
  - PULMONARY ARTERIAL PRESSURE INCREASED [None]
  - RENAL FAILURE [None]
  - RENAL TUBULAR NECROSIS [None]
  - VENTRICULAR HYPERTROPHY [None]
  - VOMITING [None]
